FAERS Safety Report 7823039-2 (Version None)
Quarter: 2011Q4

REPORT INFORMATION
  Report Type: 
  Country: None (occurrence: None)
  Receive Date: 20111018
  Receipt Date: 20100920
  Transmission Date: 20120403
  Serious: No
  Sender: FDA-Public Use
  Company Number: US-ASTRAZENECA-2010SE44292

PATIENT
  Age: 14 Year
  Sex: Female
  Weight: 49 kg

DRUGS (8)
  1. VERAMYST [Concomitant]
     Indication: ASTHMA
     Route: 065
  2. SYMBICORT [Suspect]
     Dosage: 160 UG TWICE A ADY
     Route: 055
     Dates: start: 20090301
  3. ALBUTEROL [Concomitant]
     Indication: ASTHMA
     Route: 055
  4. ALBUTEROL [Concomitant]
     Dosage: PRN
     Route: 055
  5. THEOPHYLLINE [Concomitant]
     Indication: ASTHMA
     Route: 048
  6. SUDAFED 12 HOUR [Concomitant]
     Indication: ASTHMA
     Route: 048
  7. SYMBICORT [Suspect]
     Indication: ASTHMA
     Dosage: 320 UG TWICE A ADY
     Route: 055
     Dates: start: 20090119, end: 20090301
  8. ZYRTEC [Concomitant]
     Indication: ASTHMA
     Dosage: DAILY
     Route: 048

REACTIONS (6)
  - ARTHROPATHY [None]
  - ASTHMA [None]
  - DIZZINESS [None]
  - TACHYCARDIA [None]
  - DRUG INEFFECTIVE [None]
  - JOINT DISLOCATION [None]
